FAERS Safety Report 15614660 (Version 1)
Quarter: 2018Q4

REPORT INFORMATION
  Report Type: Spontaneous
  Country: US (occurrence: US)
  Receive Date: 20181113
  Receipt Date: 20181113
  Transmission Date: 20190205
  Serious: No
  Sender: FDA-Public Use
  Company Number: US-MYLANLABS-2018M1081282

PATIENT
  Sex: Female
  Weight: 70.3 kg

DRUGS (1)
  1. LEVOTHYROXINE. [Suspect]
     Active Substance: LEVOTHYROXINE
     Indication: THYROIDECTOMY
     Dosage: 112 ?G, UNK

REACTIONS (4)
  - Rash [Unknown]
  - Pruritus [Unknown]
  - Hypersensitivity [Unknown]
  - Reaction to excipient [Unknown]
